FAERS Safety Report 15245079 (Version 1)
Quarter: 2018Q3

REPORT INFORMATION
  Report Type: Spontaneous
  Country: US (occurrence: US)
  Receive Date: 20180806
  Receipt Date: 20180806
  Transmission Date: 20181010
  Serious: Yes (Life-Threatening, Hospitalization, Other)
  Sender: FDA-Public Use
  Company Number: US-GILEAD-2018-0351550

PATIENT
  Age: 56 Year
  Sex: Male

DRUGS (1)
  1. AXICABTAGENE CILOLEUCEL [Suspect]
     Active Substance: AXICABTAGENE CILOLEUCEL
     Indication: PRODUCT USED FOR UNKNOWN INDICATION
     Dosage: SINGLE INTRAVENOUS
     Route: 042
     Dates: start: 20180717, end: 20180717

REACTIONS (4)
  - Cytokine release syndrome [Unknown]
  - Seizure [Unknown]
  - Neurological symptom [Unknown]
  - Pyrexia [Unknown]
